FAERS Safety Report 9646716 (Version 1)
Quarter: 2013Q4

REPORT INFORMATION
  Report Type: Spontaneous
  Country: US (occurrence: US)
  Receive Date: 20131027
  Receipt Date: 20131027
  Transmission Date: 20140711
  Serious: Yes (Other)
  Sender: FDA-Public Use
  Company Number: US-NAPPMUNDI-USA-2013-0101789

PATIENT
  Sex: Male

DRUGS (5)
  1. OXYCONTIN TABLETS [Suspect]
     Indication: DRUG WITHDRAWAL SYNDROME
     Dosage: UNK
     Route: 048
  2. VICODIN [Suspect]
     Indication: DRUG ABUSE
     Route: 048
  3. PERCOCET /00446701/ [Suspect]
     Indication: DRUG ABUSE
     Dosage: UNK, DAILY
     Route: 048
  4. HEROIN [Suspect]
     Indication: DRUG ABUSE
  5. COCAINE [Suspect]
     Indication: PRODUCT USED FOR UNKNOWN INDICATION

REACTIONS (2)
  - Drug dependence [Unknown]
  - Substance abuse [Unknown]
